FAERS Safety Report 6185643-X (Version None)
Quarter: 2009Q2

REPORT INFORMATION
  Report Type: 
  Country: None (occurrence: None)
  Receive Date: 20090507
  Receipt Date: 20090424
  Transmission Date: 20091009
  Serious: No
  Sender: FDA-Public Use
  Company Number: 2009-195697-NL

PATIENT
  Sex: Male

DRUGS (5)
  1. MIRTAZAPINE [Suspect]
     Indication: DYSPHEMIA
     Dosage: 60 MG/30 MG
  2. MIRTAZAPINE [Suspect]
     Indication: SOCIAL PHOBIA
     Dosage: 60 MG/30 MG
  3. VENLAFAXINE HYDROCHLORIDE [Concomitant]
  4. CLONAZEPAM [Concomitant]
  5. CLONIDINE [Concomitant]

REACTIONS (1)
  - SLEEP PARALYSIS [None]
